FAERS Safety Report 8158298-2 (Version None)
Quarter: 2012Q1

REPORT INFORMATION
  Report Type: 
  Country: None (occurrence: None)
  Receive Date: 20120223
  Receipt Date: 20120215
  Transmission Date: 20120608
  Serious: Yes (Hospitalization)
  Sender: FDA-Public Use
  Company Number: US-BIOGENIDEC-2012BI005664

PATIENT
  Sex: Female

DRUGS (3)
  1. TYSABRI [Suspect]
     Indication: MULTIPLE SCLEROSIS
     Route: 042
     Dates: start: 20050223
  2. TYSABRI [Suspect]
     Route: 042
     Dates: start: 20080501, end: 20100701
  3. TYSABRI [Suspect]
     Route: 042
     Dates: start: 20110210, end: 20111228

REACTIONS (1)
  - MULTIPLE SCLEROSIS RELAPSE [None]
